FAERS Safety Report 5805038-5 (Version None)
Quarter: 2008Q3

REPORT INFORMATION
  Report Type: 
  Country: None (occurrence: None)
  Receive Date: 20080709
  Receipt Date: 20080626
  Transmission Date: 20090109
  Serious: No
  Sender: FDA-Public Use
  Company Number: US-BOEHRINGER INGELHEIM GMBH, GERMANY-2006-BP-14680BP

PATIENT
  Sex: Female

DRUGS (2)
  1. SPIRIVA [Suspect]
     Indication: DYSPNOEA
  2. ATROVENT HFA [Suspect]
     Indication: DYSPNOEA

REACTIONS (2)
  - CONDITION AGGRAVATED [None]
  - WHEEZING [None]
